FAERS Safety Report 6596435-1 (Version None)
Quarter: 2010Q1

REPORT INFORMATION
  Report Type: 
  Country: None (occurrence: None)
  Receive Date: 20100216
  Receipt Date: 20100202
  Transmission Date: 20100710
  Serious: Yes (Other)
  Sender: FDA-Public Use
  Company Number: 2010AL000716

PATIENT
  Age: 70 Year
  Sex: Male

DRUGS (5)
  1. PROPRANOLOL [Suspect]
     Indication: TREMOR
     Dosage: 60 MG; QD; PO
     Route: 048
     Dates: start: 20090301
  2. METOPROLOL TARTRATE [Concomitant]
  3. PLAXIL [Concomitant]
  4. ASPIRIN [Concomitant]
  5. ZANTAC [Concomitant]

REACTIONS (3)
  - DRUG TOXICITY [None]
  - INFLUENZA LIKE ILLNESS [None]
  - VERTIGO [None]
